FAERS Safety Report 5545217-8 (Version None)
Quarter: 2007Q4

REPORT INFORMATION
  Report Type: 
  Country: None (occurrence: None)
  Receive Date: 20071121
  Receipt Date: 20070615
  Transmission Date: 20080405
  Serious: Yes (Other)
  Sender: FDA-Public Use
  Company Number: HQWYE655818JUN07

PATIENT
  Sex: Female

DRUGS (1)
  1. PREMARIN (CONJUGATED ESTROGENS, CREAM, VAGINA) [Suspect]

REACTIONS (1)
  - BREAST CANCER [None]
